FAERS Safety Report 8235796 (Version 2)
Quarter: 2012Q4

REPORT INFORMATION
  Report Type: 
  Country: US (occurrence: US)
  Receive Date: 20111108
  Receipt Date: 20121119
  Transmission Date: 20130627
  Serious: No
  Sender: FDA-Public Use
  Company Number: US-BAYER-2011-098445

PATIENT
  Sex: Female
  Weight: 76.19 kg

DRUGS (2)
  1. ALEVE CAPLET/TABLET,MIDOL EXTENDED RELIEF CAPLET [Suspect]
     Dosage: bottle count 50s
     Route: 048
  2. DIOVAN HCT [Concomitant]

REACTIONS (1)
  - Malaise [Unknown]
